FAERS Safety Report 12859726 (Version 1)
Quarter: 2016Q4

REPORT INFORMATION
  Report Type: Spontaneous
  Country: US (occurrence: US)
  Receive Date: 20161018
  Receipt Date: 20161018
  Transmission Date: 20170207
  Serious: No
  Sender: FDA-Public Use
  Company Number: US-009507513-1610USA002380

PATIENT
  Sex: Female

DRUGS (2)
  1. NEXPLANON [Suspect]
     Active Substance: ETONOGESTREL
     Dosage: 1 DF, UNK
     Route: 059
     Dates: start: 2016
  2. NEXPLANON [Suspect]
     Active Substance: ETONOGESTREL
     Dosage: 1 DF, UNK
     Route: 059
     Dates: start: 2013, end: 2016

REACTIONS (5)
  - Medical device site discomfort [Recovered/Resolved]
  - Product quality issue [Unknown]
  - Pain in extremity [Recovered/Resolved]
  - Device kink [Recovered/Resolved]
  - Migration of implanted drug [Recovered/Resolved]

NARRATIVE: CASE EVENT DATE: 2016
